FAERS Safety Report 7790084-5 (Version None)
Quarter: 2011Q3

REPORT INFORMATION
  Report Type: 
  Country: None (occurrence: None)
  Receive Date: 20110930
  Receipt Date: 20110222
  Transmission Date: 20111222
  Serious: No
  Sender: FDA-Public Use
  Company Number: US-ASTRAZENECA-2011SE02036

PATIENT
  Age: 68 Year
  Sex: Female

DRUGS (1)
  1. ARIMIDEX [Suspect]
     Indication: BREAST CANCER
     Route: 048
     Dates: start: 20090101

REACTIONS (27)
  - STRESS [None]
  - WEIGHT INCREASED [None]
  - DYSSTASIA [None]
  - GAIT DISTURBANCE [None]
  - LIGAMENT LAXITY [None]
  - BLOOD CHOLESTEROL INCREASED [None]
  - FATIGUE [None]
  - INSOMNIA [None]
  - SPEECH DISORDER [None]
  - HEARING IMPAIRED [None]
  - JOINT SWELLING [None]
  - OSTEOPOROSIS [None]
  - OEDEMA PERIPHERAL [None]
  - SEBORRHOEA [None]
  - DRUG DOSE OMISSION [None]
  - PSYCHOMOTOR HYPERACTIVITY [None]
  - PAIN [None]
  - CONFUSIONAL STATE [None]
  - HOT FLUSH [None]
  - PAIN IN EXTREMITY [None]
  - BALANCE DISORDER [None]
  - ARTHRALGIA [None]
  - BLOOD PRESSURE INCREASED [None]
  - DEPRESSION [None]
  - BACK PAIN [None]
  - ARRHYTHMIA [None]
  - ASTHENIA [None]
